FAERS Safety Report 5080991-9 (Version None)
Quarter: 2006Q3

REPORT INFORMATION
  Report Type: 
  Country: None (occurrence: None)
  Receive Date: 20060816
  Receipt Date: 20060530
  Transmission Date: 20061208
  Serious: Yes (Life-Threatening, Hospitalization, Other)
  Sender: FDA-Public Use
  Company Number: US-SP-2006-01320

PATIENT
  Age: 11 Year
  Sex: Male

DRUGS (3)
  1. MENACTRA [Suspect]
     Indication: IMMUNISATION
     Route: 030
     Dates: start: 20050802
  2. DECAVAC [Suspect]
     Indication: IMMUNISATION
     Route: 030
     Dates: start: 20050802
  3. TUBERSOL [Suspect]
     Indication: TUBERCULIN TEST
     Route: 023
     Dates: start: 20050802

REACTIONS (22)
  - ABASIA [None]
  - ALANINE AMINOTRANSFERASE INCREASED [None]
  - ANAEMIA [None]
  - ARTERIOVENOUS MALFORMATION [None]
  - BLOOD CREATINE PHOSPHOKINASE INCREASED [None]
  - BLOOD POTASSIUM INCREASED [None]
  - CEREBRAL HAEMORRHAGE [None]
  - FACTOR VII DEFICIENCY [None]
  - FATIGUE [None]
  - GAMMA-GLUTAMYLTRANSFERASE INCREASED [None]
  - HEADACHE [None]
  - HEMIPARESIS [None]
  - LIVER FUNCTION TEST ABNORMAL [None]
  - LOSS OF CONSCIOUSNESS [None]
  - MUSCULAR WEAKNESS [None]
  - NYSTAGMUS [None]
  - PROTHROMBIN TIME PROLONGED [None]
  - PYREXIA [None]
  - RASH ERYTHEMATOUS [None]
  - THROMBOCYTOPENIA [None]
  - VOCAL CORD PARALYSIS [None]
  - VOCAL CORD PARESIS [None]
